FAERS Safety Report 14914643 (Version 1)
Quarter: 2018Q2

REPORT INFORMATION
  Report Type: Report from Study
  Country: US (occurrence: US)
  Receive Date: 20180518
  Receipt Date: 20180518
  Transmission Date: 20180711
  Serious: Yes (Other)
  Sender: FDA-Public Use
  Company Number: US-JAZZ-2018-US-005221

PATIENT
  Sex: Female

DRUGS (28)
  1. XYREM [Suspect]
     Active Substance: SODIUM OXYBATE
     Dosage: 2.5 G, BID
     Route: 048
     Dates: start: 201412, end: 201601
  2. MIDODRINE HCL [Concomitant]
     Active Substance: MIDODRINE HYDROCHLORIDE
  3. SYNTHROID [Concomitant]
     Active Substance: LEVOTHYROXINE SODIUM
  4. CALCIUM CARBONATE. [Concomitant]
     Active Substance: CALCIUM CARBONATE
  5. ELEUTHEROCOCCUS SENTICOSUS ROOT [Concomitant]
  6. ASPIRIN EC [Concomitant]
     Active Substance: ASPIRIN
  7. TOCOPHEROL [Concomitant]
     Active Substance: TOCOPHEROL
  8. TOVIAZ [Concomitant]
     Active Substance: FESOTERODINE FUMARATE
  9. LEXAPRO [Concomitant]
     Active Substance: ESCITALOPRAM OXALATE
  10. VITAMIN D3 [Concomitant]
     Active Substance: CHOLECALCIFEROL
  11. CHIA SEED [Concomitant]
  12. IBUPROFEN. [Concomitant]
     Active Substance: IBUPROFEN
  13. FOLIC ACID. [Concomitant]
     Active Substance: FOLIC ACID
  14. INDERAL [Concomitant]
     Active Substance: PROPRANOLOL HYDROCHLORIDE
  15. XYREM [Suspect]
     Active Substance: SODIUM OXYBATE
     Indication: NARCOLEPSY
     Dosage: 2.25 G, BID
     Route: 048
     Dates: start: 201307, end: 201405
  16. XYREM [Suspect]
     Active Substance: SODIUM OXYBATE
     Dosage: 3.25 G, BID
     Route: 048
     Dates: start: 201601, end: 2017
  17. EVENING PRIMROSE OIL [Concomitant]
     Active Substance: EVENING PRIMROSE OIL\HERBALS
  18. ANGELICA SINENSIS [Concomitant]
     Active Substance: ANGELICA SINENSIS ROOT
  19. OXYCODONE AND ACETAMINOPHEN [Concomitant]
     Active Substance: ACETAMINOPHEN\OXYCODONE HYDROCHLORIDE
  20. OLIVE OIL [Concomitant]
     Active Substance: OLIVE OIL
  21. FISH OIL W/TOCOPHEROL [Concomitant]
  22. TRAMADOL HCL [Concomitant]
     Active Substance: TRAMADOL HYDROCHLORIDE
  23. LEVOTHYROXINE. [Concomitant]
     Active Substance: LEVOTHYROXINE
  24. FIBER [Concomitant]
     Active Substance: PSYLLIUM HUSK
  25. ZINGIBER OFFICINALE RHIZOME [Concomitant]
  26. XYREM [Suspect]
     Active Substance: SODIUM OXYBATE
     Dosage: 3 G, BID
     Route: 048
     Dates: start: 201706
  27. NUVIGIL [Concomitant]
     Active Substance: ARMODAFINIL
  28. FLAXSEED [Concomitant]
     Active Substance: FLAX SEED

REACTIONS (3)
  - Hyperhidrosis [Recovered/Resolved]
  - Mood altered [Unknown]
  - Depression [Unknown]
